FAERS Safety Report 7305687-1 (Version None)
Quarter: 2011Q1

REPORT INFORMATION
  Report Type: 
  Country: None (occurrence: None)
  Receive Date: 20110222
  Receipt Date: 20110214
  Transmission Date: 20110831
  Serious: Yes (Hospitalization, Congenital Anomaly)
  Sender: FDA-Public Use
  Company Number: A0894361A

PATIENT
  Sex: Male

DRUGS (2)
  1. PAXIL [Suspect]
     Indication: PANIC DISORDER
     Dosage: 30MG PER DAY
     Route: 064
  2. INSULIN [Concomitant]
     Route: 064

REACTIONS (5)
  - VENTRICULAR SEPTAL DEFECT [None]
  - PULMONARY VALVE STENOSIS CONGENITAL [None]
  - FALLOT'S TETRALOGY [None]
  - DRUG EXPOSURE DURING PREGNANCY [None]
  - ATRIAL SEPTAL DEFECT [None]
